FAERS Safety Report 24902519 (Version 1)
Quarter: 2025Q1

REPORT INFORMATION
  Report Type: Report from Study
  Country: US (occurrence: US)
  Receive Date: 20250130
  Receipt Date: 20250130
  Transmission Date: 20250409
  Serious: Yes (Other)
  Sender: TAKEDA
  Company Number: US-TAKEDA-2021TUS033036

PATIENT
  Age: 42 Year
  Sex: Male

DRUGS (1)
  1. RECOMBINATE [Suspect]
     Active Substance: ANTIHEMOPHILIC FACTOR, HUMAN RECOMBINANT
     Indication: Product used for unknown indication

REACTIONS (6)
  - Contusion [Recovered/Resolved]
  - Haemorrhage [Recovered/Resolved]
  - Joint injury [Unknown]
  - Limb injury [Unknown]
  - Fall [Unknown]
  - Product availability issue [Unknown]

NARRATIVE: CASE EVENT DATE: 20250110
